FAERS Safety Report 4607709-5 (Version None)
Quarter: 2005Q1

REPORT INFORMATION
  Report Type: 
  Country: None (occurrence: None)
  Receive Date: 20050309
  Receipt Date: 20050224
  Transmission Date: 20050727
  Serious: Yes (Hospitalization)
  Sender: FDA-Public Use
  Company Number: 050224-0000591

PATIENT
  Age: 19 Year
  Sex: Female

DRUGS (1)
  1. METHAMPHETAMINE HCL [Suspect]
     Dosage: IV
     Route: 042

REACTIONS (5)
  - DRUG ABUSER [None]
  - DRUG INEFFECTIVE [None]
  - HEMIANOPIA [None]
  - ISCHAEMIC CEREBRAL INFARCTION [None]
  - VASCULITIS CEREBRAL [None]
